FAERS Safety Report 16599259 (Version 1)
Quarter: 2019Q3

REPORT INFORMATION
  Report Type: Spontaneous
  Country: GB (occurrence: GB)
  Receive Date: 20190719
  Receipt Date: 20190719
  Transmission Date: 20191004
  Serious: Yes (Hospitalization, Disabling, Other)
  Sender: FDA-Public Use
  Company Number: GB-AMGEN-GBRSP2019112736

PATIENT
  Sex: Female

DRUGS (37)
  1. TRASTUZUMAB. [Suspect]
     Active Substance: TRASTUZUMAB
     Indication: HER-2 POSITIVE BREAST CANCER
     Dosage: 598.5 MILLIGRAM
     Route: 042
     Dates: start: 20160523, end: 20160523
  2. TRASTUZUMAB. [Suspect]
     Active Substance: TRASTUZUMAB
     Dosage: 399 MILLIGRAM, Q3WK
     Route: 042
     Dates: start: 20160613, end: 20160831
  3. TRASTUZUMAB. [Suspect]
     Active Substance: TRASTUZUMAB
     Dosage: 420 MILLIGRAM, Q3WK
     Route: 042
     Dates: start: 20170317, end: 20170417
  4. TRASTUZUMAB. [Suspect]
     Active Substance: TRASTUZUMAB
     Dosage: 378 MILLIGRAM, Q3WK
     Route: 042
     Dates: start: 20180823, end: 20181004
  5. TRASTUZUMAB. [Suspect]
     Active Substance: TRASTUZUMAB
     Dosage: 325.5 MILLIGRAM, Q3WK
     Route: 042
     Dates: start: 20190308
  6. CAPECITABINE. [Suspect]
     Active Substance: CAPECITABINE
     Dosage: 1650 MILLIGRAM
     Route: 048
     Dates: start: 20180802
  7. TRASTUZUMAB EMTANSINE [Suspect]
     Active Substance: ADO-TRASTUZUMAB EMTANSINE
     Indication: BREAST CANCER METASTATIC
     Dosage: 220 MILLIGRAM, Q3WK
     Route: 042
     Dates: start: 20170816, end: 20180110
  8. TRASTUZUMAB EMTANSINE [Suspect]
     Active Substance: ADO-TRASTUZUMAB EMTANSINE
     Dosage: 240 MILLIGRAM, Q3WK
     Route: 042
     Dates: start: 20180131
  9. DEXAMETHASONE. [Concomitant]
     Active Substance: DEXAMETHASONE
     Dosage: 2 MILLIGRAM, QD
     Route: 048
     Dates: start: 20180717
  10. ONDANSETRON [Concomitant]
     Active Substance: ONDANSETRON
     Dosage: 4 MILLIGRAM
     Route: 048
     Dates: start: 20160613, end: 201806
  11. DOCETAXEL. [Suspect]
     Active Substance: DOCETAXEL
     Indication: HER-2 POSITIVE BREAST CANCER
     Dosage: 130 MILLIGRAM, Q3WK
     Route: 042
     Dates: start: 20160407, end: 20160831
  12. DEXAMETHASONE. [Concomitant]
     Active Substance: DEXAMETHASONE
     Indication: VISION BLURRED
     Dosage: 4 MILLIGRAM, QD
     Route: 048
     Dates: start: 20180214, end: 20180221
  13. CODEINE PHOSPHATE [Concomitant]
     Active Substance: CODEINE PHOSPHATE
     Dosage: UNK
     Dates: start: 2016
  14. TRASTUZUMAB. [Suspect]
     Active Substance: TRASTUZUMAB
     Dosage: 346.5 MILLIGRAM, Q3WK
     Route: 042
     Dates: start: 20181206, end: 20190208
  15. PARACETAMOL [Concomitant]
     Active Substance: ACETAMINOPHEN
     Indication: HEADACHE
     Dosage: UNK
     Route: 048
     Dates: start: 201801
  16. FLUCONAZOLE. [Concomitant]
     Active Substance: FLUCONAZOLE
     Indication: ORAL CANDIDIASIS
     Dosage: 100 MILLIGRAM, QD
     Route: 048
     Dates: start: 20170224
  17. CLARITHROMYCIN. [Concomitant]
     Active Substance: CLARITHROMYCIN
     Dosage: UNK
     Dates: start: 20160510
  18. ONDANSETRON [Concomitant]
     Active Substance: ONDANSETRON
     Dosage: 8 MILLIGRAM
     Route: 048
     Dates: start: 20180621, end: 20180802
  19. TRASTUZUMAB. [Suspect]
     Active Substance: TRASTUZUMAB
     Dosage: 409.5 MILLIGRAM
     Route: 042
     Dates: start: 20161014, end: 20170217
  20. TRASTUZUMAB. [Suspect]
     Active Substance: TRASTUZUMAB
     Dosage: 504 MILLIGRAM, Q3WK
     Route: 042
     Dates: start: 20180802, end: 20180802
  21. SERETIDE [Concomitant]
     Active Substance: FLUTICASONE PROPIONATE\SALMETEROL XINAFOATE
     Indication: COUGH
     Dosage: UNK
     Route: 065
     Dates: start: 20170517
  22. DOMPERIDONE [Concomitant]
     Active Substance: DOMPERIDONE
     Dosage: 10 MILLIGRAM
     Route: 048
     Dates: start: 20170816
  23. TRASTUZUMAB. [Suspect]
     Active Substance: TRASTUZUMAB
     Dosage: 430.5 MILLIGRAM, Q3WK
     Route: 042
     Dates: start: 20160923, end: 20160923
  24. TRASTUZUMAB. [Suspect]
     Active Substance: TRASTUZUMAB
     Dosage: 367.5 MILLIGRAM, Q3WK
     Route: 042
     Dates: start: 20181025, end: 20181115
  25. PERTUZUMAB. [Suspect]
     Active Substance: PERTUZUMAB
     Indication: HER-2 POSITIVE BREAST CANCER
     Dosage: 840 MILLIGRAM
     Route: 042
     Dates: start: 20160523, end: 2016
  26. PERTUZUMAB. [Suspect]
     Active Substance: PERTUZUMAB
     Dosage: 420 MILLIGRAM
     Route: 042
     Dates: start: 20160613
  27. VENTOLIN [Concomitant]
     Active Substance: ALBUTEROL SULFATE
     Indication: COUGH
     Dosage: UNK
     Dates: start: 20170517
  28. ENOXAPARIN [Concomitant]
     Active Substance: ENOXAPARIN
     Indication: PULMONARY EMBOLISM
     Dosage: 90 MILLIGRAM, QD
     Route: 058
     Dates: start: 20180727
  29. TRASTUZUMAB. [Suspect]
     Active Substance: TRASTUZUMAB
     Dosage: 399 MILLIGRAM, Q3WK
     Route: 042
     Dates: start: 20170523, end: 20170726
  30. SEPTRIN [Concomitant]
     Active Substance: SULFAMETHOXAZOLE\TRIMETHOPRIM
     Dosage: 480 MILLIGRAM, QD
     Route: 048
     Dates: start: 20170105
  31. TRASTUZUMAB. [Suspect]
     Active Substance: TRASTUZUMAB
     Dosage: 525 MILLIGRAM, Q3WK
     Route: 042
     Dates: start: 20180621, end: 20180621
  32. CAPECITABINE. [Suspect]
     Active Substance: CAPECITABINE
     Indication: BREAST CANCER METASTATIC
     Dosage: 1500 MILLIGRAM
     Route: 048
     Dates: start: 20180621, end: 2018
  33. DOXYCLINE [DOXYCYCLINE] [Concomitant]
     Active Substance: DOXYCYCLINE
     Indication: LOWER RESPIRATORY TRACT INFECTION
     Dosage: UNK
     Dates: start: 20170814
  34. CYCLIZINE [Concomitant]
     Active Substance: CYCLIZINE
     Dosage: 50 MILLIGRAM
     Route: 042
     Dates: start: 20170816
  35. METOCLOPRAMIDE. [Concomitant]
     Active Substance: METOCLOPRAMIDE
     Dosage: 10 MILLIGRAM
     Route: 048
     Dates: start: 20160407
  36. LOPERAMIDE [Concomitant]
     Active Substance: LOPERAMIDE
     Dosage: 4 MILLIGRAM
     Route: 048
     Dates: start: 20180621
  37. DAPSONE. [Concomitant]
     Active Substance: DAPSONE
     Dosage: 100 MILLIGRAM, QD
     Route: 048
     Dates: start: 20190306

REACTIONS (2)
  - Off label use [Unknown]
  - Groin pain [Not Recovered/Not Resolved]

NARRATIVE: CASE EVENT DATE: 20190402
